FAERS Safety Report 23878330 (Version 2)
Quarter: 2024Q2

REPORT INFORMATION
  Report Type: Spontaneous
  Country: GB (occurrence: None)
  Receive Date: 20240521
  Receipt Date: 20240627
  Transmission Date: 20240716
  Serious: Yes (Other)
  Sender: FDA-Public Use
  Company Number: None

PATIENT
  Age: 37 Year
  Sex: Female
  Weight: 89 kg

DRUGS (11)
  1. METHOTREXATE [Suspect]
     Active Substance: METHOTREXATE
     Indication: Lip swelling
     Dates: start: 20231123, end: 20240513
  2. AMOXICILLIN [Concomitant]
     Active Substance: AMOXICILLIN
     Dates: start: 20240501, end: 20240506
  3. CODEINE PHOSPHATE [Concomitant]
     Active Substance: CODEINE PHOSPHATE
     Dosage: TAKE ONE OR TWO TABLETS FOUR TIMES A DAY WHEN REQUIRED
     Dates: start: 20240318, end: 20240401
  4. EXEMESTANE [Concomitant]
     Active Substance: EXEMESTANE
     Dates: start: 20220617
  5. FEXOFENADINE [Concomitant]
     Active Substance: FEXOFENADINE HYDROCHLORIDE
     Dates: start: 20240409, end: 20240414
  6. FLUOXETINE [Concomitant]
     Active Substance: FLUOXETINE HYDROCHLORIDE
     Dates: start: 20240425, end: 20240430
  7. FOLIC ACID [Concomitant]
     Active Substance: FOLIC ACID
     Dosage: TAKE ONE TABLET ONCE A WEEK, DOSE TO BE TAKE ON.
     Dates: start: 20231123, end: 20231128
  8. OMEPRAZOLE [Concomitant]
     Active Substance: DONEPEZIL HYDROCHLORIDE\OMEPRAZOLE\OMEPRAZOLE MAGNESIUM
     Dates: start: 20240516, end: 20240521
  9. PREDNISOLONE [Concomitant]
     Active Substance: PREDNISOLONE
     Dosage: TAKE REDUCING COURSE. TAKE THREE TABLETS AS A S...
     Dates: start: 20240513, end: 20240518
  10. PROPRANOLOL [Concomitant]
     Active Substance: PROPRANOLOL HYDROCHLORIDE
     Dosage: TAKE 1 TABLET UPTO THREE TIMES A DAY AS REQUIRED
     Dates: start: 20240318, end: 20240415
  11. GOSERELIN [Concomitant]
     Active Substance: GOSERELIN
     Dates: start: 20221117, end: 20221122

REACTIONS (5)
  - Lip swelling [Recovered/Resolved]
  - Sensation of foreign body [Unknown]
  - Product use in unapproved indication [Unknown]
  - Dyspnoea [Unknown]
  - Sensation of foreign body [Unknown]

NARRATIVE: CASE EVENT DATE: 20231123
